FAERS Safety Report 7544201-2 (Version None)
Quarter: 2011Q2

REPORT INFORMATION
  Report Type: 
  Country: None (occurrence: None)
  Receive Date: 20110613
  Receipt Date: 20061204
  Transmission Date: 20111010
  Serious: Yes (Death)
  Sender: FDA-Public Use
  Company Number: PHNR2006AU01642

PATIENT
  Sex: Male

DRUGS (1)
  1. CLOZAPINE [Suspect]
     Dosage: 12.5MG-500MG
     Route: 048
     Dates: start: 20041026

REACTIONS (2)
  - COMPLETED SUICIDE [None]
  - ASPHYXIA [None]
